FAERS Safety Report 5408969-3 (Version None)
Quarter: 2007Q3

REPORT INFORMATION
  Report Type: 
  Country: None (occurrence: None)
  Receive Date: 20070806
  Receipt Date: 20070723
  Transmission Date: 20080115
  Serious: Yes (Life-Threatening, Other)
  Sender: FDA-Public Use
  Company Number: TPA2007A01233

PATIENT
  Age: 48 Year
  Sex: Male
  Weight: 67.586 kg

DRUGS (7)
  1. ROZEREM [Suspect]
     Indication: INSOMNIA
     Dosage: 8 MG, QHS, PER ORAL
     Route: 048
     Dates: start: 20070515, end: 20070518
  2. LIPITOR [Concomitant]
  3. TOPROL-XL [Concomitant]
  4. SOMA [Concomitant]
  5. NORCO [Concomitant]
  6. METHADONE HCL [Concomitant]
  7. ASPIRIN [Concomitant]

REACTIONS (2)
  - IMPAIRED DRIVING ABILITY [None]
  - SOMNOLENCE [None]
